FAERS Safety Report 7461876-7 (Version None)
Quarter: 2011Q2

REPORT INFORMATION
  Report Type: 
  Country: None (occurrence: None)
  Receive Date: 20110506
  Receipt Date: 20110406
  Transmission Date: 20111010
  Serious: Yes (Hospitalization)
  Sender: FDA-Public Use
  Company Number: US-BAYER-201040878NA

PATIENT
  Sex: Female
  Weight: 65.76 kg

DRUGS (5)
  1. AMITRIPTYLINE [Concomitant]
     Indication: AFFECTIVE DISORDER
  2. ZOMIG [Concomitant]
     Dosage: AS NEEDED
  3. FLONASE [Concomitant]
  4. YAZ [Suspect]
     Indication: CONTRACEPTION
     Dosage: UNK
     Dates: start: 20070101, end: 20080101
  5. PLAVIX [Concomitant]

REACTIONS (3)
  - ISCHAEMIC STROKE [None]
  - CEREBROVASCULAR DISORDER [None]
  - TRANSIENT ISCHAEMIC ATTACK [None]
